FAERS Safety Report 20339145 (Version 2)
Quarter: 2022Q1

REPORT INFORMATION
  Report Type: Spontaneous
  Country: US (occurrence: US)
  Receive Date: 20220117
  Receipt Date: 20220124
  Transmission Date: 20220423
  Serious: Yes (Hospitalization, Other)
  Sender: FDA-Public Use
  Company Number: US-CIPLA LTD.-2022US00116

PATIENT

DRUGS (1)
  1. ZOLPIDEM TARTRATE [Suspect]
     Active Substance: ZOLPIDEM TARTRATE
     Indication: Insomnia
     Dosage: UNK (90-100 MG) QD, PER NIGHT LAST YEAR
     Route: 065

REACTIONS (6)
  - Drug withdrawal convulsions [Recovered/Resolved]
  - Self-medication [Recovered/Resolved]
  - Incorrect dose administered [Recovered/Resolved]
  - Depression [Unknown]
  - Drug abuse [Recovered/Resolved]
  - Drug dependence [Recovered/Resolved]
